FAERS Safety Report 10354956 (Version 1)
Quarter: 2014Q3

REPORT INFORMATION
  Report Type: Spontaneous
  Country: FR (occurrence: FR)
  Receive Date: 20140731
  Receipt Date: 20140731
  Transmission Date: 20150326
  Serious: Yes (Hospitalization)
  Sender: FDA-Public Use
  Company Number: FR-SA-2014SA098659

PATIENT
  Age: 85 Year
  Sex: Male

DRUGS (7)
  1. LANTUS [Concomitant]
     Active Substance: INSULIN GLARGINE
  2. COAPROVEL [Suspect]
     Active Substance: HYDROCHLOROTHIAZIDE\IRBESARTAN
     Indication: PRODUCT USED FOR UNKNOWN INDICATION
     Dosage: DOSE:1 UNIT(S)
     Route: 048
     Dates: end: 20140617
  3. REPAGLINIDE. [Concomitant]
     Active Substance: REPAGLINIDE
  4. PERMIXON [Concomitant]
     Active Substance: SAW PALMETTO
  5. ALFUZOSINE [Concomitant]
     Active Substance: ALFUZOSIN HYDROCHLORIDE
  6. KARDEGIC [Concomitant]
     Active Substance: ASPIRIN LYSINE
  7. VICTAN [Concomitant]
     Active Substance: ETHYL LOFLAZEPATE

REACTIONS (4)
  - Hypokinesia [Recovered/Resolved]
  - Hyponatraemia [Recovered/Resolved]
  - Malaise [Recovered/Resolved]
  - Confusional state [Recovered/Resolved]

NARRATIVE: CASE EVENT DATE: 20140616
